FAERS Safety Report 6140363-2 (Version None)
Quarter: 2009Q2

REPORT INFORMATION
  Report Type: 
  Country: None (occurrence: None)
  Receive Date: 20090401
  Receipt Date: 20090318
  Transmission Date: 20091009
  Serious: Yes (Hospitalization)
  Sender: FDA-Public Use
  Company Number: JP-GENENTECH-275567

PATIENT
  Age: 72 Year
  Sex: Male

DRUGS (1)
  1. AVASTIN [Suspect]
     Indication: NEOVASCULARISATION
     Dosage: 1.25 MG, QD
     Route: 031
     Dates: start: 20081219, end: 20081219

REACTIONS (1)
  - OCULAR HYPERAEMIA [None]
